FAERS Safety Report 9548134 (Version 2)
Quarter: 2014Q1

REPORT INFORMATION
  Report Type: Spontaneous
  Country: US (occurrence: None)
  Receive Date: 20130524
  Receipt Date: 20130724
  Transmission Date: 20141002
  Serious: No
  Sender: FDA-Public Use
  Company Number: PHEH2013US004881

PATIENT
  Age: 41 Year
  Sex: Female
  Weight: 11.6 kg

DRUGS (1)
  1. GILENYA (FINGOLIMOD) CAPSULE, 0.5 MG [Suspect]
     Indication: MULTIPLE SCLEROSIS
     Route: 048
     Dates: start: 20130225

REACTIONS (7)
  - Fatigue [None]
  - Arthralgia [None]
  - Back pain [None]
  - Oropharyngeal pain [None]
  - Somnolence [None]
  - Headache [None]
  - Viral infection [None]
